FAERS Safety Report 12864302 (Version 1)
Quarter: 2016Q4

REPORT INFORMATION
  Report Type: Spontaneous
  Country: US (occurrence: US)
  Receive Date: 20161020
  Receipt Date: 20161020
  Transmission Date: 20170207
  Serious: No
  Sender: FDA-Public Use
  Company Number: US-TEVA-641322USA

PATIENT
  Sex: Female
  Weight: 86.26 kg

DRUGS (1)
  1. METHOTREXATE. [Suspect]
     Active Substance: METHOTREXATE
     Indication: RHEUMATOID ARTHRITIS
     Dosage: 0.9ML
     Dates: start: 201509

REACTIONS (2)
  - Abdominal discomfort [Unknown]
  - Fatigue [Unknown]
